FAERS Safety Report 19118127 (Version 1)
Quarter: 2021Q2

REPORT INFORMATION
  Report Type: Spontaneous
  Country: US (occurrence: US)
  Receive Date: 20210409
  Receipt Date: 20210409
  Transmission Date: 20210717
  Serious: No
  Sender: FDA-Public Use
  Company Number: US-LNK INTERNATIONAL, INC.-2109154

PATIENT
  Sex: Female

DRUGS (2)
  1. EXTRA STRENGTH ACETAMINOPHEN LIQUID, 500MG [Suspect]
     Active Substance: ACETAMINOPHEN
     Indication: PAIN
     Dates: start: 20210322
  2. LISINOPRIL. [Concomitant]
     Active Substance: LISINOPRIL

REACTIONS (2)
  - Throat tightness [None]
  - Dysphagia [None]
